FAERS Safety Report 5087461-2 (Version None)
Quarter: 2006Q3

REPORT INFORMATION
  Report Type: 
  Country: None (occurrence: None)
  Receive Date: 20060727
  Receipt Date: 20060601
  Transmission Date: 20061208
  Serious: Yes (Other)
  Sender: FDA-Public Use
  Company Number: 2006060457

PATIENT
  Age: 73 Year
  Sex: Female
  Weight: 58.9676 kg

DRUGS (7)
  1. LYRICA [Suspect]
     Indication: PERIPHERAL NERVE DESTRUCTION
     Dosage: 100 MG (50 MG, 2 IN 1 D), ORAL
     Route: 048
     Dates: start: 20060428
  2. PANCREATIN TRIPLE STRENGTH CAP [Suspect]
     Indication: ILL-DEFINED DISORDER
     Dates: end: 20060503
  3. ALL OTHER THERAPEUTIC PRODUCTS [Concomitant]
  4. MAGNESIUM [Concomitant]
  5. CALCIUM GLUCONATE [Concomitant]
  6. FAMOTIDINE [Concomitant]
  7. GLUCOSAMINE [Concomitant]

REACTIONS (1)
  - LIPASE INCREASED [None]
